FAERS Safety Report 12789863 (Version 2)
Quarter: 2017Q1

REPORT INFORMATION
  Report Type: Spontaneous
  Country: BE (occurrence: BE)
  Receive Date: 20160928
  Receipt Date: 20170329
  Transmission Date: 20170428
  Serious: Yes (Death, Life-Threatening, Other)
  Sender: FDA-Public Use
  Company Number: BE-INCYTE CORPORATION-2016IN006035

PATIENT
  Age: 72 Year
  Sex: Male
  Weight: 69 kg

DRUGS (5)
  1. JAKAVI [Suspect]
     Active Substance: RUXOLITINIB
     Indication: MYELODYSPLASTIC SYNDROME
     Dosage: 2 X 20 MG DAILY
     Route: 065
     Dates: start: 20150403
  2. ASAFLOW [Concomitant]
     Active Substance: ASPIRIN
     Indication: PRODUCT USED FOR UNKNOWN INDICATION
     Dosage: 80 MG, QD
     Route: 065
  3. LYRICA [Concomitant]
     Active Substance: PREGABALIN
     Indication: PRODUCT USED FOR UNKNOWN INDICATION
     Dosage: 2 X 75MG BID (150 MG BID)
     Route: 065
  4. COVERSYL//PERINDOPRIL ARGININE [Concomitant]
     Active Substance: PERINDOPRIL ARGININE
     Indication: PRODUCT USED FOR UNKNOWN INDICATION
     Dosage: 10 MG, QD
     Route: 065
  5. JAKAVI [Suspect]
     Active Substance: RUXOLITINIB
     Indication: PRIMARY MYELOFIBROSIS

REACTIONS (11)
  - Product use issue [Unknown]
  - Cerebrovascular accident [Unknown]
  - Colon adenoma [Unknown]
  - Night sweats [Unknown]
  - Anaemia [Unknown]
  - Large intestine polyp [Unknown]
  - Death [Fatal]
  - Weight decreased [Unknown]
  - Adenocarcinoma [Unknown]
  - Second primary malignancy [Unknown]
  - Splenomegaly [Unknown]

NARRATIVE: CASE EVENT DATE: 20150403
